FAERS Safety Report 14343512 (Version 1)
Quarter: 2018Q1

REPORT INFORMATION
  Report Type: Spontaneous
  Country: JP (occurrence: JP)
  Receive Date: 20180102
  Receipt Date: 20180102
  Transmission Date: 20180509
  Serious: Yes (Other)
  Sender: FDA-Public Use
  Company Number: JP-SA-2017SA262615

PATIENT
  Age: 86 Year
  Sex: Male

DRUGS (3)
  1. CLOPIDOGREL BISULFATE. [Suspect]
     Active Substance: CLOPIDOGREL BISULFATE
     Route: 065
  2. ASPIRIN. [Concomitant]
     Active Substance: ASPIRIN
     Route: 065
  3. SUNITINIB MALATE. [Concomitant]
     Active Substance: SUNITINIB MALATE

REACTIONS (7)
  - Haematuria [Unknown]
  - Haematoma [Unknown]
  - Anaemia [Unknown]
  - Haematemesis [Unknown]
  - Dysphagia [Recovered/Resolved]
  - Decreased appetite [Unknown]
  - Condition aggravated [Unknown]
